FAERS Safety Report 8047715-4 (Version None)
Quarter: 2012Q1

REPORT INFORMATION
  Report Type: 
  Country: None (occurrence: None)
  Receive Date: 20120116
  Receipt Date: 20120110
  Transmission Date: 20120608
  Serious: Yes (Hospitalization)
  Sender: FDA-Public Use
  Company Number: JP-AMGEN-JPNCT2012002710

PATIENT
  Age: 66 Year
  Sex: Female
  Weight: 46 kg

DRUGS (13)
  1. BUCILANT [Concomitant]
     Indication: RHEUMATOID ARTHRITIS
     Dosage: 100 MG, BID
     Route: 048
  2. FOLIC ACID [Concomitant]
     Indication: PROPHYLAXIS
     Route: 048
     Dates: start: 20110316, end: 20120104
  3. METHOTREXATE [Concomitant]
     Indication: RHEUMATOID ARTHRITIS
     Dosage: 12MG/WEEK
     Route: 048
     Dates: start: 20111116, end: 20120104
  4. VITANEURIN [Concomitant]
     Indication: ADVERSE EVENT
     Route: 048
     Dates: start: 20110928, end: 20111206
  5. URSODIOL [Concomitant]
     Indication: ADVERSE EVENT
     Route: 048
     Dates: start: 20110810
  6. BLINDED DENOSUMAB [Suspect]
     Indication: RHEUMATOID ARTHRITIS
     Dosage: UNK
     Route: 058
     Dates: start: 20110216, end: 20111207
  7. ASASURFAN [Concomitant]
     Indication: RHEUMATOID ARTHRITIS
     Route: 048
  8. PREDNISOLONE [Concomitant]
     Indication: RHEUMATOID ARTHRITIS
     Route: 048
     Dates: start: 20110518
  9. CALCIUM CARBONATE [Concomitant]
     Indication: RHEUMATOID ARTHRITIS
     Dosage: UNK UNK, QD
     Route: 048
  10. BLINDED PLACEBO [Suspect]
     Indication: RHEUMATOID ARTHRITIS
     Dosage: UNK
     Route: 058
     Dates: start: 20110216, end: 20111207
  11. LOXONIN [Concomitant]
     Indication: RHEUMATOID ARTHRITIS
     Dosage: 60 MG, BID
     Route: 048
     Dates: start: 20110216
  12. RANITAC [Concomitant]
     Indication: PROPHYLAXIS
     Route: 048
     Dates: end: 20111206
  13. ICROL [Concomitant]
     Indication: PROPHYLAXIS
     Route: 048
     Dates: start: 20111207

REACTIONS (4)
  - PYREXIA [None]
  - STOMATITIS [None]
  - LYMPHOMA [None]
  - DECREASED APPETITE [None]
